FAERS Safety Report 17031530 (Version 1)
Quarter: 2019Q4

REPORT INFORMATION
  Report Type: Spontaneous
  Country: US (occurrence: US)
  Receive Date: 20191012
  Receipt Date: 20191012
  Transmission Date: 20200122
  Serious: No
  Sender: FDA-Public Use
  Company Number: None

PATIENT
  Age: 67 Year
  Sex: Female

DRUGS (1)
  1. TALTZ [Suspect]
     Active Substance: IXEKIZUMAB
     Dosage: ?          OTHER
     Route: 058
     Dates: start: 20190928

REACTIONS (5)
  - Injection site erythema [None]
  - Injection site urticaria [None]
  - Pain in extremity [None]
  - Arthralgia [None]
  - Injection site warmth [None]

NARRATIVE: CASE EVENT DATE: 20191012
